FAERS Safety Report 20136043 (Version 1)
Quarter: 2021Q4

REPORT INFORMATION
  Report Type: Spontaneous
  Country: CZ (occurrence: CZ)
  Receive Date: 20211201
  Receipt Date: 20211201
  Transmission Date: 20220303
  Serious: Yes (Death)
  Sender: FDA-Public Use
  Company Number: CZ-002147023-NVSC2021CZ217977

PATIENT
  Age: 63 Year
  Sex: Female

DRUGS (7)
  1. ALLOPURINOL [Suspect]
     Active Substance: ALLOPURINOL
     Indication: Product used for unknown indication
     Dosage: UNK (0-1-0)
     Route: 065
  2. KYMRIAH [Suspect]
     Active Substance: TISAGENLECLEUCEL
     Indication: Diffuse large B-cell lymphoma refractory
     Dosage: UNK UNK, TOTAL
     Route: 041
     Dates: start: 20210615
  3. HELICID                            /00661201/ [Concomitant]
     Indication: Product used for unknown indication
     Dosage: 20 MILLIGRAM 20 MG (1-0-0)
     Route: 065
  4. METOPROLOL SUCCINATE [Concomitant]
     Active Substance: METOPROLOL SUCCINATE
     Indication: Product used for unknown indication
     Dosage: 25 MILLIGRAM 25 MG (1/2-0-0)
     Route: 065
  5. PERINDOPRIL ARGININE [Concomitant]
     Active Substance: PERINDOPRIL ARGININE
     Indication: Product used for unknown indication
     Dosage: 5 MG (1-0-0)
     Route: 065
  6. NADROPARIN CALCIUM [Concomitant]
     Active Substance: NADROPARIN CALCIUM
     Indication: Product used for unknown indication
     Dosage: 0.6 MILLILITER 0.6 ML (0-0-1)
     Route: 058
  7. ZOREM                              /00972402/ [Concomitant]
     Indication: Product used for unknown indication
     Dosage: 5 MILLIGRAM 5 MG (1-0-0)

REACTIONS (2)
  - Malignant neoplasm progression [Fatal]
  - Diffuse large B-cell lymphoma refractory [Fatal]

NARRATIVE: CASE EVENT DATE: 20210826
